FAERS Safety Report 7752990-7 (Version None)
Quarter: 2011Q3

REPORT INFORMATION
  Report Type: 
  Country: None (occurrence: None)
  Receive Date: 20110915
  Receipt Date: 20110912
  Transmission Date: 20111222
  Serious: Yes (Death, Life-Threatening, Hospitalization)
  Sender: FDA-Public Use
  Company Number: JP-B.I. PHARMACEUTICALS,INC./RIDGEFIELD-2011-BP-21978NB

PATIENT
  Age: 79 Year
  Sex: Male

DRUGS (2)
  1. PRADAXA [Suspect]
     Indication: ATRIAL FIBRILLATION
     Dosage: 110 MG
     Route: 065
     Dates: end: 20110908
  2. VERAPAMIL HCL [Concomitant]
     Indication: ARRHYTHMIA
     Route: 065
     Dates: end: 20110910

REACTIONS (8)
  - MOUTH HAEMORRHAGE [None]
  - HAEMATURIA [None]
  - RENAL IMPAIRMENT [None]
  - HAEMATOCHEZIA [None]
  - ANAEMIA [None]
  - HAEMOPTYSIS [None]
  - MELAENA [None]
  - HAEMORRHAGE [None]
